FAERS Safety Report 18681222 (Version 1)
Quarter: 2020Q4

REPORT INFORMATION
  Report Type: Spontaneous
  Country: US (occurrence: US)
  Receive Date: 20201228
  Receipt Date: 20201228
  Transmission Date: 20210114
  Serious: No
  Sender: FDA-Public Use
  Company Number: None

PATIENT
  Age: 83 Year
  Sex: Female

DRUGS (1)
  1. CAPECITABINE TAB 500 MG [Suspect]
     Active Substance: CAPECITABINE
     Dosage: OTHER
     Route: 048
     Dates: start: 202011

REACTIONS (8)
  - Fatigue [None]
  - Arthralgia [None]
  - Palmar-plantar erythrodysaesthesia syndrome [None]
  - Back pain [None]
  - Myalgia [None]
  - Bone pain [None]
  - Vision blurred [None]
  - Feeling cold [None]

NARRATIVE: CASE EVENT DATE: 20201223
